FAERS Safety Report 6541297-1 (Version None)
Quarter: 2010Q1

REPORT INFORMATION
  Report Type: 
  Country: None (occurrence: None)
  Receive Date: 20100118
  Receipt Date: 20100108
  Transmission Date: 20100710
  Serious: Yes (Other)
  Sender: FDA-Public Use
  Company Number: US-MYLANLABS-2010S1000499

PATIENT
  Age: 33 Year
  Sex: Female

DRUGS (2)
  1. ACCUTANE [Suspect]
     Dates: start: 20090513
  2. AMNESTEEM [Suspect]
     Route: 048
     Dates: end: 20090901

REACTIONS (1)
  - DRUG EXPOSURE BEFORE PREGNANCY [None]
